FAERS Safety Report 11521468 (Version 1)
Quarter: 2015Q3

REPORT INFORMATION
  Report Type: Other
  Country: BE (occurrence: BE)
  Receive Date: 20150918
  Receipt Date: 20150918
  Transmission Date: 20151125
  Serious: Yes (Other)
  Sender: FDA-Public Use
  Company Number: BE-MYLANLABS-2015M1030775

PATIENT

DRUGS (6)
  1. CALCITONIN SALMON. [Suspect]
     Active Substance: CALCITONIN SALMON
     Dosage: 100 IU, QD
     Route: 030
     Dates: start: 20150724, end: 20150803
  2. GAMBARAN                           /00495901/ [Concomitant]
     Active Substance: AMINOPHENAZONE\CAMYLOFIN\CHLORPHENOXAMINE\EPHEDRINE\ETAMIPHYLLIN
     Dosage: UNK
     Route: 065
  3. CALCITONIN SALMON. [Suspect]
     Active Substance: CALCITONIN SALMON
     Dosage: 50 IU, QD
     Route: 030
     Dates: start: 20150810, end: 20150810
  4. CALCITONIN SALMON. [Suspect]
     Active Substance: CALCITONIN SALMON
     Dosage: UNK
     Route: 065
     Dates: start: 201503, end: 20150724
  5. ZALDIAR [Concomitant]
     Active Substance: ACETAMINOPHEN\TRAMADOL HYDROCHLORIDE
     Dosage: UNK
     Route: 065
  6. PANADOL                            /00020001/ [Concomitant]
     Dosage: UNK
     Route: 065

REACTIONS (8)
  - Dyspnoea [Recovering/Resolving]
  - Anxiety [Unknown]
  - Burning sensation [Recovering/Resolving]
  - Erythema [Recovering/Resolving]
  - Vomiting [Recovering/Resolving]
  - Pruritus [Recovering/Resolving]
  - Diarrhoea [Recovering/Resolving]
  - Surgery [Unknown]

NARRATIVE: CASE EVENT DATE: 2015
